FAERS Safety Report 9528650 (Version 2)
Quarter: 2013Q3

REPORT INFORMATION
  Report Type: Report from Study
  Country: CA (occurrence: CA)
  Receive Date: 20130917
  Receipt Date: 20130917
  Transmission Date: 20140515
  Serious: Yes (Hospitalization, Other)
  Sender: FDA-Public Use
  Company Number: CA-ABBVIE-11P-028-0718444-00

PATIENT
  Age: 71 Year
  Sex: Female
  Weight: 79.9 kg

DRUGS (2)
  1. HUMIRA 40 MG/0.8 ML PEN [Suspect]
     Indication: PSORIASIS
     Route: 058
     Dates: start: 20100902, end: 2013
  2. HUMIRA 40 MG/0.8 ML PEN [Suspect]
     Route: 058
     Dates: start: 2013

REACTIONS (10)
  - Angina pectoris [Unknown]
  - Myocardial infarction [Recovering/Resolving]
  - Onychomycosis [Recovered/Resolved]
  - Pain [Unknown]
  - Pain [Recovered/Resolved]
  - Psoriasis [Recovered/Resolved]
  - Coronary artery reocclusion [Recovered/Resolved]
  - Haematoma [Unknown]
  - Psoriasis [Not Recovered/Not Resolved]
  - Stress [Unknown]
